FAERS Safety Report 8329264-9 (Version None)
Quarter: 2012Q2

REPORT INFORMATION
  Report Type: 
  Country: None (occurrence: None)
  Receive Date: 20120502
  Receipt Date: 20120404
  Transmission Date: 20120825
  Serious: No
  Sender: FDA-Public Use
  Company Number: US-ASTRAZENECA-2012SE22311

PATIENT
  Sex: Female

DRUGS (1)
  1. FASLODEX [Suspect]
     Route: 030

REACTIONS (4)
  - WEIGHT DECREASED [None]
  - OPEN WOUND [None]
  - BEDRIDDEN [None]
  - GENERAL PHYSICAL HEALTH DETERIORATION [None]
